FAERS Safety Report 10863122 (Version 2)
Quarter: 2015Q1

REPORT INFORMATION
  Report Type: Spontaneous
  Country: JP (occurrence: JP)
  Receive Date: 20150223
  Receipt Date: 20150310
  Transmission Date: 20150721
  Serious: Yes (Other)
  Sender: FDA-Public Use
  Company Number: JP-PFIZER INC-2015026529

PATIENT
  Age: 86 Year
  Sex: Male

DRUGS (9)
  1. RHYTHMY [Concomitant]
     Active Substance: RILMAZAFONE HYDROCHLORIDE
     Dosage: UNK
  2. PANVITAN [Concomitant]
     Dosage: UNK
  3. DEPAS [Concomitant]
     Active Substance: ETIZOLAM
     Dosage: UNK
  4. SENNOSIDE [Concomitant]
     Active Substance: SENNOSIDES
     Dosage: UNK
  5. TOVIAZ [Suspect]
     Active Substance: FESOTERODINE FUMARATE
     Dosage: 4 MG, DAILY
     Route: 048
     Dates: start: 20140813
  6. TAXOL [Suspect]
     Active Substance: PACLITAXEL
     Indication: CHEMOTHERAPY
     Dosage: UNK
  7. MUCODYNE [Concomitant]
     Active Substance: CARBOCYSTEINE
     Dosage: UNK
  8. MAGMITT [Concomitant]
     Active Substance: MAGNESIUM OXIDE
     Dosage: UNK
  9. AMOXAN [Concomitant]
     Active Substance: AMOXAPINE
     Dosage: UNK

REACTIONS (2)
  - Macular oedema [Recovered/Resolved]
  - Corneal opacity [Recovered/Resolved]

NARRATIVE: CASE EVENT DATE: 20150106
